FAERS Safety Report 7549500-6 (Version None)
Quarter: 2011Q2

REPORT INFORMATION
  Report Type: 
  Country: None (occurrence: None)
  Receive Date: 20110615
  Receipt Date: 20041020
  Transmission Date: 20111010
  Serious: Yes (Hospitalization, Other)
  Sender: FDA-Public Use
  Company Number: PHFR2004GB02710

PATIENT
  Sex: Female

DRUGS (3)
  1. CLOZAPINE [Suspect]
     Indication: SCHIZOPHRENIA
     Dosage: 600 MG, QD
     Route: 048
     Dates: start: 19980611
  2. LIVIAL [Concomitant]
     Indication: HORMONE REPLACEMENT THERAPY
     Dosage: 2.5 MG, QD
     Route: 048
  3. TEMAZEPAM [Concomitant]
     Indication: INSOMNIA
     Dosage: 20 MG, QD
     Route: 048

REACTIONS (13)
  - LIVER FUNCTION TEST ABNORMAL [None]
  - INFECTION [None]
  - PAIN [None]
  - ABDOMINAL PAIN UPPER [None]
  - BLOOD BILIRUBIN INCREASED [None]
  - BLOOD ALKALINE PHOSPHATASE INCREASED [None]
  - GAMMA-GLUTAMYLTRANSFERASE INCREASED [None]
  - CHOLECYSTITIS [None]
  - ASPARTATE AMINOTRANSFERASE INCREASED [None]
  - BODY TEMPERATURE INCREASED [None]
  - CHOLELITHIASIS [None]
  - JAUNDICE CHOLESTATIC [None]
  - ALANINE AMINOTRANSFERASE INCREASED [None]
